FAERS Safety Report 4338982-9 (Version None)
Quarter: 2004Q2

REPORT INFORMATION
  Report Type: 
  Country: None (occurrence: None)
  Receive Date: 20040409
  Receipt Date: 20040331
  Transmission Date: 20050107
  Serious: No
  Sender: FDA-Public Use
  Company Number: 04P-163-0255617-00

PATIENT
  Age: 25 Year
  Sex: Male
  Weight: 52 kg

DRUGS (6)
  1. SEVOFLURANE [Suspect]
     Indication: ANAESTHESIA
     Dosage: 1.7 %, 1 IN 1 D, INHALATION   DAY 16 - DAY 16
     Route: 055
  2. VANCOMYCIN [Suspect]
     Indication: CELLULITIS
     Dosage: 1 GM, 2 IN 1 D, INTRAVENOUS  DAY 11 - DAY 17
     Route: 042
  3. DESFLURANE [Suspect]
     Indication: ANAESTHESIA
     Dosage: 8 %, 1 IN 1 D, INHALATION  DAY 16 - DAY 16
     Route: 055
  4. PAROXETINE HCL [Concomitant]
  5. CRYSTALLOID [Concomitant]
  6. HETASTARCH 6% IN 0.9% SODIUM CHLORIDE IN PLASTIC CONTAINER [Concomitant]

REACTIONS (2)
  - DRUG INTERACTION [None]
  - RENAL FAILURE [None]
